FAERS Safety Report 20908490 (Version 1)
Quarter: 2022Q2

REPORT INFORMATION
  Report Type: Report from Study
  Country: ES (occurrence: ES)
  Receive Date: 20220603
  Receipt Date: 20220603
  Transmission Date: 20220721
  Serious: Yes (Other)
  Sender: FDA-Public Use
  Company Number: None

PATIENT
  Age: 45 Year
  Sex: Female

DRUGS (6)
  1. HUMIRA [Suspect]
     Active Substance: ADALIMUMAB
     Indication: Crohn^s disease
     Dosage: 2 PRE-FILLED PENS OF 0.4 ML
     Route: 058
     Dates: start: 20150527, end: 20220215
  2. SUMATRIPTAN SUCCINATE [Concomitant]
     Active Substance: SUMATRIPTAN SUCCINATE
     Indication: Headache
     Dosage: 50 MG FILM-COATED TABLETS, 4 TABLETS
     Route: 048
     Dates: start: 202102
  3. LEXXEMA [Concomitant]
     Indication: Psoriasis
     Dosage: 1 MG/G OINTMENT, 1 TUBE 30 G
     Route: 061
     Dates: start: 201605
  4. CLOBEX [Concomitant]
     Active Substance: CLOBETASOL PROPIONATE
     Indication: Psoriasis
     Dosage: 500 MICROGRAMS/G SHAMPOO, 1 BOTTLE OF 125 ML
     Route: 061
     Dates: start: 201607
  5. BETNOVATE [Concomitant]
     Active Substance: BETAMETHASONE
     Indication: Psoriasis
     Dosage: 1 MG/G CREAM, 1 TUBE OF 30 G
     Route: 061
     Dates: start: 201607
  6. ZOMIG [Concomitant]
     Active Substance: ZOLMITRIPTAN
     Indication: Headache
     Dosage: 2,5 MG TABLETS ORODISPERSABLE, 6 TABLETS
     Route: 048
     Dates: start: 201705

REACTIONS (3)
  - Psoriatic arthropathy [Unknown]
  - Condition aggravated [Unknown]
  - Psoriasis [Unknown]

NARRATIVE: CASE EVENT DATE: 20211117
